FAERS Safety Report 6299438-X (Version None)
Quarter: 2009Q3

REPORT INFORMATION
  Report Type: 
  Country: None (occurrence: None)
  Receive Date: 20090806
  Receipt Date: 20090727
  Transmission Date: 20100115
  Serious: Yes (Other)
  Sender: FDA-Public Use
  Company Number: A0796930A

PATIENT
  Age: 50 Year
  Sex: Male

DRUGS (13)
  1. REQUIP XL [Suspect]
     Indication: DRUG USE FOR UNKNOWN INDICATION
  2. SINEMET CR [Suspect]
     Indication: DRUG USE FOR UNKNOWN INDICATION
     Route: 065
  3. AZILECT [Suspect]
     Indication: MOTOR DYSFUNCTION
     Dosage: .5MG PER DAY
  4. CYMBALTA [Suspect]
     Indication: DEPRESSION
     Dosage: 60MG PER DAY
  5. KLONOPIN [Suspect]
     Dosage: .5MG PER DAY
  6. AMANTADINE HCL [Suspect]
     Indication: DYSKINESIA
     Dosage: 100MG TWICE PER DAY
  7. TRIHEXYPHENIDYL [Suspect]
     Dosage: 2MG FOUR TIMES PER DAY
  8. CARBIDOPA-LEVODOPA [Suspect]
  9. CENTRUM [Suspect]
     Indication: ROUTINE HEALTH MAINTENANCE
  10. VITAMIN D [Suspect]
     Indication: DRUG USE FOR UNKNOWN INDICATION
     Dosage: 1000IU PER DAY
  11. FLAX OIL [Suspect]
     Indication: DRUG USE FOR UNKNOWN INDICATION
     Dosage: 1TBS PER DAY
  12. CO Q 10 [Suspect]
     Indication: DRUG USE FOR UNKNOWN INDICATION
     Dosage: 200MG PER DAY
  13. UNKNOWN [Concomitant]

REACTIONS (24)
  - AKINESIA [None]
  - ASTHENIA [None]
  - BALANCE DISORDER [None]
  - CONDITION AGGRAVATED [None]
  - CONTUSION [None]
  - DEPRESSED LEVEL OF CONSCIOUSNESS [None]
  - DRUG EFFECT DECREASED [None]
  - DRUG EFFECT DELAYED [None]
  - DRUG INTERACTION [None]
  - DYSGRAPHIA [None]
  - DYSKINESIA [None]
  - FALL [None]
  - FATIGUE [None]
  - HYPOAESTHESIA [None]
  - HYPOTONIA [None]
  - ILL-DEFINED DISORDER [None]
  - INSOMNIA [None]
  - JOINT SWELLING [None]
  - LOSS OF CONTROL OF LEGS [None]
  - MUSCULAR WEAKNESS [None]
  - MUSCULOSKELETAL DISCOMFORT [None]
  - SENSORY LOSS [None]
  - SOMNOLENCE [None]
  - TREMOR [None]
